FAERS Safety Report 25665940 (Version 1)
Quarter: 2025Q3

REPORT INFORMATION
  Report Type: Spontaneous
  Country: US (occurrence: US)
  Receive Date: 20250811
  Receipt Date: 20250811
  Transmission Date: 20251021
  Serious: Yes (Other)
  Sender: ANI
  Company Number: US-ANIPHARMA-2025-US-036570

PATIENT
  Age: 70 Year
  Sex: Male
  Weight: 133.81 kg

DRUGS (35)
  1. CORTICOTROPIN [Suspect]
     Active Substance: CORTICOTROPIN
     Indication: Psoriatic arthropathy
     Route: 058
  2. PREDNISONE [Concomitant]
     Active Substance: PREDNISONE
  3. OXYCONTIN [Concomitant]
     Active Substance: OXYCODONE HYDROCHLORIDE
  4. PERCOCET [Concomitant]
     Active Substance: ACETAMINOPHEN\OXYCODONE HYDROCHLORIDE
  5. NITROLINGUAL [Concomitant]
     Active Substance: NITROGLYCERIN
  6. ISOSORBIDE DINITRATE [Concomitant]
     Active Substance: ISOSORBIDE DINITRATE
  7. VITAMIN D3 [Concomitant]
     Active Substance: CHOLECALCIFEROL
  8. NITROGLYCERIN [Concomitant]
     Active Substance: NITROGLYCERIN
  9. SPIRIVA [Concomitant]
     Active Substance: TIOTROPIUM BROMIDE MONOHYDRATE
  10. VICTOZA [Concomitant]
     Active Substance: LIRAGLUTIDE
  11. ATORVASTATIN CALCIUM [Concomitant]
     Active Substance: ATORVASTATIN CALCIUM
  12. AMIODARONE HYDROCHLORIDE [Concomitant]
     Active Substance: AMIODARONE HYDROCHLORIDE
  13. TAMSULOSIN HYDROCHLORIDE [Concomitant]
     Active Substance: TAMSULOSIN HYDROCHLORIDE
  14. SPIRONOLACTONE [Concomitant]
     Active Substance: SPIRONOLACTONE
  15. HUMALOG [Concomitant]
     Active Substance: INSULIN LISPRO
  16. ELIQUIS [Concomitant]
     Active Substance: APIXABAN
  17. BUMETANIDE [Concomitant]
     Active Substance: BUMETANIDE
  18. MECLIZINE HYDROCHLORIDE [Concomitant]
     Active Substance: MECLIZINE HYDROCHLORIDE
  19. RAMIPRIL [Concomitant]
     Active Substance: RAMIPRIL
  20. TOUJEO MAX [Concomitant]
     Active Substance: INSULIN GLARGINE
  21. OXYCODONE HYDROCHLORIDE [Concomitant]
     Active Substance: OXYCODONE HYDROCHLORIDE
  22. TOLTERODINE TARTRATE [Concomitant]
     Active Substance: TOLTERODINE TARTRATE
  23. VITAMIN E [Concomitant]
     Active Substance: .ALPHA.-TOCOPHEROL
  24. PREDNISONE [Concomitant]
     Active Substance: PREDNISONE
  25. HYDROXYCHLOROQUINE SULFATE [Concomitant]
     Active Substance: HYDROXYCHLOROQUINE SULFATE
  26. TOPIRAMATE [Concomitant]
     Active Substance: TOPIRAMATE
  27. ASPIRIN [Concomitant]
     Active Substance: ASPIRIN
  28. PROTONIX DR [Concomitant]
  29. NOVOLOG [Concomitant]
     Active Substance: INSULIN ASPART
  30. RANITIDINE HYDROCHLORIDE [Concomitant]
     Active Substance: RANITIDINE HYDROCHLORIDE
  31. THERA-M [Concomitant]
  32. ALBUTEROL SUL [Concomitant]
  33. VITAMINS [Concomitant]
     Active Substance: VITAMINS
  34. METOPROLOL TARTRATE [Concomitant]
     Active Substance: METOPROLOL TARTRATE
  35. FLUTICASONE PROPIONATE [Concomitant]
     Active Substance: FLUTICASONE PROPIONATE

REACTIONS (5)
  - Hip arthroplasty [Unknown]
  - Musculoskeletal discomfort [Not Recovered/Not Resolved]
  - Injection site bruising [Unknown]
  - Weight decreased [Unknown]
  - Candida infection [Recovered/Resolved]

NARRATIVE: CASE EVENT DATE: 20250501
